FAERS Safety Report 13072379 (Version 1)
Quarter: 2016Q4

REPORT INFORMATION
  Report Type: Spontaneous
  Country: US (occurrence: US)
  Receive Date: 20161229
  Receipt Date: 20161229
  Transmission Date: 20170207
  Serious: Yes (Other)
  Sender: FDA-Public Use
  Company Number: None

PATIENT
  Age: 75 Year
  Sex: Female
  Weight: 72.64 kg

DRUGS (13)
  1. ADVAIR HFA [Concomitant]
     Active Substance: FLUTICASONE PROPIONATE\SALMETEROL XINAFOATE
  2. MONTELUKAST [Concomitant]
     Active Substance: MONTELUKAST SODIUM
  3. ULTRA COQ10 WITH VITAMIN D [Concomitant]
  4. PRADAXA [Concomitant]
     Active Substance: DABIGATRAN ETEXILATE MESYLATE
  5. BILLBERRY [Concomitant]
  6. LOSARTAN. [Concomitant]
     Active Substance: LOSARTAN
  7. PRAVASTATIN. [Concomitant]
     Active Substance: PRAVASTATIN
  8. CAL-MAG CITRATE [Concomitant]
  9. SUPER B COMPLEX [Concomitant]
     Active Substance: CYANOCOBALAMIN\DEXPANTHENOL\NIACINAMIDE\PYRIDOXINE HYDROCHLORIDE\RIBOFLAVIN 5^-PHOSPHATE SODIUM\THIAMINE HYDROCHLORIDE\VITAMIN B COMPLEX
  10. OCUVITE [Concomitant]
     Active Substance: VITAMINS
  11. BISOPROLOL [Concomitant]
     Active Substance: BISOPROLOL
  12. BRILINTA [Suspect]
     Active Substance: TICAGRELOR
     Indication: STENT PLACEMENT
     Route: 048
     Dates: start: 20161121, end: 20161128
  13. ... (UNREADABLE) [Concomitant]

REACTIONS (4)
  - Torsade de pointes [None]
  - Dyspnoea [None]
  - Insomnia [None]
  - Oxygen saturation decreased [None]

NARRATIVE: CASE EVENT DATE: 20161122
